FAERS Safety Report 8313434-X (Version None)
Quarter: 2012Q2

REPORT INFORMATION
  Report Type: 
  Country: None (occurrence: None)
  Receive Date: 20120426
  Receipt Date: 20120423
  Transmission Date: 20120825
  Serious: Yes (Death)
  Sender: FDA-Public Use
  Company Number: PHHY2012FR034636

PATIENT
  Sex: Female
  Weight: 78 kg

DRUGS (12)
  1. PRAZEPAM [Concomitant]
     Indication: DEPRESSION
     Dosage: 1 DF, QD
     Dates: start: 19900101
  2. AMITRIPTYLINE HCL [Concomitant]
     Indication: ANXIETY
  3. ZOLEDRONOC ACID [Suspect]
     Indication: OSTEOPOROTIC FRACTURE
     Dosage: 5 MG, UNK
     Route: 042
     Dates: start: 20120102
  4. LYRICA [Concomitant]
     Indication: PAIN
  5. NEBIVOLOL HCL [Concomitant]
     Indication: HYPERTENSION
     Dosage: 1 DF, QD
     Dates: start: 19900101
  6. PRAZEPAM [Concomitant]
     Indication: ANXIETY
  7. LYRICA [Concomitant]
     Indication: ANXIETY
  8. FUROSEMIDE [Concomitant]
     Indication: HYPERTENSION
     Dosage: 1 DF, QD
     Dates: start: 19900101
  9. AMITRIPTYLINE HCL [Concomitant]
     Indication: DEPRESSION
     Dosage: 1 DF, QD
     Dates: start: 19900101
  10. LYRICA [Concomitant]
     Indication: DEPRESSION
     Dosage: 50 MG, DAILY
     Dates: start: 20111115
  11. HYDROCORTISONE [Concomitant]
     Indication: HYPOPITUITARISM
     Dosage: 30 MG, DAILY
     Dates: start: 19900101
  12. LEVOTHYROXINE SODIUM [Concomitant]
     Indication: HYPOPITUITARISM
     Dosage: 150 UG, DAILY
     Dates: start: 19900101

REACTIONS (4)
  - CHOKING [None]
  - INCORRECT DOSE ADMINISTERED [None]
  - VOMITING [None]
  - ABDOMINAL PAIN [None]
